FAERS Safety Report 15130714 (Version 1)
Quarter: 2018Q3

REPORT INFORMATION
  Report Type: Spontaneous
  Country: US (occurrence: US)
  Receive Date: 20180711
  Receipt Date: 20180711
  Transmission Date: 20181010
  Serious: No
  Sender: FDA-Public Use
  Company Number: US-AMNEAL PHARMACEUTICALS-2018AMN00252

PATIENT
  Sex: Male
  Weight: 99.77 kg

DRUGS (3)
  1. SOTALOL. [Concomitant]
     Active Substance: SOTALOL
  2. PRAVASTATIN. [Concomitant]
     Active Substance: PRAVASTATIN
  3. DICLOFENAC SODIUM. [Suspect]
     Active Substance: DICLOFENAC SODIUM
     Indication: MUSCLE STRAIN
     Dosage: 2 MG, 4X/DAY
     Dates: start: 20180428, end: 20180429

REACTIONS (1)
  - Hypersensitivity [Recovered/Resolved]
